FAERS Safety Report 9064191 (Version 1)
Quarter: 2013Q1

REPORT INFORMATION
  Report Type: Spontaneous
  Country: US (occurrence: US)
  Receive Date: 20130213
  Receipt Date: 20130213
  Transmission Date: 20140127
  Serious: No
  Sender: FDA-Public Use
  Company Number: US-BAYER-2013-018932

PATIENT
  Age: 52 Year
  Sex: Male

DRUGS (1)
  1. MAGNEVIST [Suspect]
     Indication: CEREBRAL SARCOIDOSIS
     Dosage: 20 ML, ONCE
     Route: 042
     Dates: start: 20130205, end: 20130205

REACTIONS (1)
  - Vomiting [None]
